FAERS Safety Report 18435147 (Version 1)
Quarter: 2020Q4

REPORT INFORMATION
  Report Type: Report from Study
  Country: FR (occurrence: FR)
  Receive Date: 20201028
  Receipt Date: 20201028
  Transmission Date: 20210114
  Serious: Yes (Hospitalization)
  Sender: FDA-Public Use
  Company Number: NVSC2020FR287095

PATIENT
  Age: 71 Year
  Sex: Male

DRUGS (3)
  1. HYDROXYCHLOROQUINE [Suspect]
     Active Substance: HYDROXYCHLOROQUINE
     Indication: MALIGNANT MELANOMA
     Dosage: 800 MG, EVERY 1 DAY(S) CYCLE 1
     Route: 048
     Dates: start: 20201006, end: 20201008
  2. TRAMETINIB [Suspect]
     Active Substance: TRAMETINIB
     Indication: MALIGNANT MELANOMA
     Dosage: 2 MG, EVERY 1 DAY(S) CYCLE 1
     Route: 048
     Dates: start: 20201006, end: 20201008
  3. TINZAPARINE SODIQUE [Concomitant]
     Active Substance: TINZAPARIN SODIUM
     Indication: PHLEBITIS
     Dosage: UNK
     Route: 065

REACTIONS (2)
  - Gastric ulcer [Not Recovered/Not Resolved]
  - Vomiting [Not Recovered/Not Resolved]

NARRATIVE: CASE EVENT DATE: 20201008
